FAERS Safety Report 9521239 (Version 1)
Quarter: 2013Q3

REPORT INFORMATION
  Report Type: Spontaneous
  Country: PT (occurrence: PT)
  Receive Date: 20130913
  Receipt Date: 20130913
  Transmission Date: 20140515
  Serious: Yes (Other)
  Sender: FDA-Public Use
  Company Number: PT-JNJFOC-20130903502

PATIENT
  Age: 82 Year
  Sex: Male
  Weight: 60 kg

DRUGS (5)
  1. ZYTIGA [Suspect]
     Indication: PROSTATE CANCER
     Route: 048
     Dates: start: 20130727
  2. PREDNISOLONE [Concomitant]
     Route: 065
  3. AMIODARONE [Concomitant]
     Indication: PROSTATE CANCER
     Route: 065
  4. ISOSORBIDE MONONITRATE [Concomitant]
     Indication: PROSTATE CANCER
     Route: 048
  5. GOSERELIN ACETATE [Concomitant]
     Indication: PROSTATE CANCER
     Route: 058

REACTIONS (2)
  - Hypokalaemia [Recovering/Resolving]
  - Malaise [Recovering/Resolving]
